FAERS Safety Report 19893284 (Version 4)
Quarter: 2021Q4

REPORT INFORMATION
  Report Type: Spontaneous
  Country: ES (occurrence: ES)
  Receive Date: 20210929
  Receipt Date: 20211123
  Transmission Date: 20220303
  Serious: Yes (Death, Other)
  Sender: FDA-Public Use
  Company Number: ES-EXELIXIS-CABO-21044488

PATIENT
  Age: 67 Year
  Sex: Female

DRUGS (2)
  1. CABOMETYX [Suspect]
     Active Substance: CABOZANTINIB S-MALATE
     Indication: Clear cell renal cell carcinoma
     Dosage: UNK
  2. CABOMETYX [Suspect]
     Active Substance: CABOZANTINIB S-MALATE
     Indication: Adenocarcinoma

REACTIONS (5)
  - Multiple organ dysfunction syndrome [Unknown]
  - Death [Fatal]
  - Aphasia [Recovered/Resolved]
  - Ataxia [Recovered/Resolved]
  - Dissociation [Recovered/Resolved]

NARRATIVE: CASE EVENT DATE: 20210720
